FAERS Safety Report 23854924 (Version 3)
Quarter: 2025Q3

REPORT INFORMATION
  Report Type: Spontaneous
  Country: US (occurrence: US)
  Receive Date: 20240514
  Receipt Date: 20250919
  Transmission Date: 20251020
  Serious: No
  Sender: ANI
  Company Number: US-ANIPHARMA-2024-US-022614

PATIENT
  Age: 74 Year
  Sex: Female

DRUGS (20)
  1. CORTICOTROPIN [Suspect]
     Active Substance: CORTICOTROPIN
     Indication: Pulmonary sarcoidosis
     Route: 058
     Dates: start: 202505
  2. IMDUR [Concomitant]
     Active Substance: ISOSORBIDE MONONITRATE
  3. ZOLOFT [Concomitant]
     Active Substance: SERTRALINE HYDROCHLORIDE
  4. BUPROPION HYDROCHLORIDE [Concomitant]
     Active Substance: BUPROPION HYDROCHLORIDE
  5. GLIMEPIRIDE [Concomitant]
     Active Substance: GLIMEPIRIDE
  6. ASPIRIN [Concomitant]
     Active Substance: ASPIRIN
  7. ALLOPURINOL [Concomitant]
     Active Substance: ALLOPURINOL
  8. AMLODIPINE BESYLATE [Concomitant]
     Active Substance: AMLODIPINE BESYLATE
  9. CLOPIDOGREL [Concomitant]
     Active Substance: CLOPIDOGREL BISULFATE
  10. TORSEMIDE [Concomitant]
     Active Substance: TORSEMIDE
  11. LOSARTAN POTASSIUM [Concomitant]
     Active Substance: LOSARTAN POTASSIUM
  12. NITROGLYCERIN [Concomitant]
     Active Substance: NITROGLYCERIN
  13. ATORVASTATIN CALCIUM [Concomitant]
     Active Substance: ATORVASTATIN CALCIUM
  14. COLACE [Concomitant]
     Active Substance: DOCUSATE SODIUM
  15. TRULICITY [Concomitant]
     Active Substance: DULAGLUTIDE
  16. FERROUS SULFATE [Concomitant]
     Active Substance: FERROUS SULFATE
  17. DONEPEZIL HYDROCHLORIDE [Concomitant]
     Active Substance: DONEPEZIL HYDROCHLORIDE
  18. CARVEDILOL [Concomitant]
     Active Substance: CARVEDILOL
  19. METFORMIN HYDROCHLORIDE [Concomitant]
     Active Substance: METFORMIN HYDROCHLORIDE
  20. LEVOTHYROXINE [Concomitant]
     Active Substance: LEVOTHYROXINE

REACTIONS (5)
  - Swelling [Not Recovered/Not Resolved]
  - Ill-defined disorder [Unknown]
  - Product dose omission issue [Unknown]
  - Product administration interrupted [Not Recovered/Not Resolved]
  - Contraindicated product administered [Unknown]
